FAERS Safety Report 7802989-7 (Version None)
Quarter: 2011Q4

REPORT INFORMATION
  Report Type: 
  Country: None (occurrence: None)
  Receive Date: 20111007
  Receipt Date: 20110926
  Transmission Date: 20120403
  Serious: Yes (Hospitalization, Other)
  Sender: FDA-Public Use
  Company Number: MX-BRISTOL-MYERS SQUIBB COMPANY-16095192

PATIENT
  Age: 90 Year
  Sex: Female
  Weight: 50 kg

DRUGS (9)
  1. IRBESARTAN AND HYDROCHLOROTHIAZIDE [Suspect]
     Indication: HYPERTENSION
     Dosage: 1 DF= 1 TABLET
     Route: 048
     Dates: start: 20070101, end: 20110821
  2. HYDROXYPROPYL METHYLCELLULOSE [Concomitant]
     Indication: GLAUCOMA
     Route: 047
     Dates: start: 19710101
  3. DEXTRAN 70 [Concomitant]
     Indication: GLAUCOMA
     Route: 047
     Dates: start: 19710101
  4. CINNARIZINE [Concomitant]
     Route: 048
     Dates: start: 20070101, end: 20110301
  5. DORZOLAMIDE HCL [Concomitant]
     Indication: GLAUCOMA
     Route: 047
     Dates: start: 19710101
  6. TIMOLOL MALEATE [Concomitant]
     Indication: GLAUCOMA
     Route: 047
     Dates: start: 19710101
  7. BRIMONIDINE TARTRATE [Concomitant]
     Indication: GLAUCOMA
     Route: 047
     Dates: start: 19710101
  8. GLYCERIN [Concomitant]
     Indication: GLAUCOMA
     Route: 047
     Dates: start: 19710101
  9. PHENYTOIN SODIUM CAP [Concomitant]
     Route: 048
     Dates: start: 20070101

REACTIONS (4)
  - HAEMORRHAGIC STROKE [None]
  - HYPOTENSION [None]
  - INTRACRANIAL ANEURYSM [None]
  - HYPERTENSION [None]
